FAERS Safety Report 11443876 (Version 3)
Quarter: 2015Q4

REPORT INFORMATION
  Report Type: Report from Study
  Country: US (occurrence: US)
  Receive Date: 20150901
  Receipt Date: 20151229
  Transmission Date: 20160304
  Serious: Yes (Other)
  Sender: FDA-Public Use
  Company Number: US-AMGEN-USASP2015087982

PATIENT
  Age: 78 Year
  Sex: Female
  Weight: 71.2 kg

DRUGS (1)
  1. PROLIA [Suspect]
     Active Substance: DENOSUMAB
     Indication: PRODUCT USED FOR UNKNOWN INDICATION
     Dosage: UNK, Q6MO
     Route: 058
     Dates: start: 20140714

REACTIONS (5)
  - Hearing impaired [Unknown]
  - Pruritus [Unknown]
  - Rash generalised [Unknown]
  - Burning sensation [Unknown]
  - Tooth abscess [Unknown]
